FAERS Safety Report 11911740 (Version 2)
Quarter: 2016Q2

REPORT INFORMATION
  Report Type: Spontaneous
  Country: FR (occurrence: FR)
  Receive Date: 20160112
  Receipt Date: 20160427
  Transmission Date: 20160815
  Serious: Yes (Death, Other)
  Sender: FDA-Public Use
  Company Number: FR-ELI_LILLY_AND_COMPANY-FR201601001674

PATIENT
  Age: 28 Year
  Sex: Female

DRUGS (10)
  1. ANAFRANIL [Suspect]
     Active Substance: CLOMIPRAMINE HYDROCHLORIDE
     Dosage: 150 MG, QD
     Route: 042
     Dates: start: 20150626, end: 20150706
  2. MISSILOR [Suspect]
     Active Substance: METRONIDAZOLE\SPIRAMYCIN
     Indication: BREATH ODOUR
     Dosage: UNK, QD
     Route: 048
     Dates: start: 20150715, end: 20150718
  3. VALIUM [Suspect]
     Active Substance: DIAZEPAM
     Indication: ANXIETY
     Dosage: 120 DF, UNKNOWN
     Route: 048
     Dates: start: 20150515, end: 20150718
  4. ANAFRANIL [Suspect]
     Active Substance: CLOMIPRAMINE HYDROCHLORIDE
     Dosage: 75 MG, QD
     Route: 042
     Dates: start: 20150623, end: 20150626
  5. ANAFRANIL [Suspect]
     Active Substance: CLOMIPRAMINE HYDROCHLORIDE
     Indication: DEPRESSION
     Dosage: 75 MG, QD
     Route: 048
     Dates: start: 20150609, end: 20150623
  6. LEPTICUR [Suspect]
     Active Substance: TROPATEPINE HYDROCHLORIDE
     Indication: EXTRAPYRAMIDAL DISORDER
     Dosage: 10 MG, QD
     Route: 048
     Dates: start: 20150717, end: 20150718
  7. ZYPREXA [Suspect]
     Active Substance: OLANZAPINE
     Indication: MENTAL DISORDER
     Dosage: 20 MG, QD
     Route: 048
     Dates: start: 20150713, end: 20150718
  8. ANAFRANIL [Suspect]
     Active Substance: CLOMIPRAMINE HYDROCHLORIDE
     Dosage: 150 MG, QD
     Route: 048
     Dates: start: 20150706, end: 20150718
  9. LOXAPAC                            /00401801/ [Suspect]
     Active Substance: LOXAPINE SUCCINATE
     Indication: MENTAL DISORDER
     Dosage: 50 DF, PRN
     Route: 048
     Dates: start: 20150623, end: 20150718
  10. IMOVANE [Suspect]
     Active Substance: ZOPICLONE
     Indication: INSOMNIA
     Dosage: 7.5 MG, QD
     Route: 048
     Dates: start: 20150505, end: 20150718

REACTIONS (7)
  - Extrapyramidal disorder [Unknown]
  - Fall [Unknown]
  - Hyperhidrosis [Unknown]
  - Death [Fatal]
  - Aneurysm ruptured [Fatal]
  - Breath odour [Recovered/Resolved]
  - Productive cough [Unknown]

NARRATIVE: CASE EVENT DATE: 20150718
